FAERS Safety Report 24154334 (Version 1)
Quarter: 2024Q3

REPORT INFORMATION
  Report Type: Report from Study
  Country: EG (occurrence: EG)
  Receive Date: 20240730
  Receipt Date: 20240730
  Transmission Date: 20241017
  Serious: No
  Sender: SANDOZ
  Company Number: EG-002147023-NVSC2023EG132632

PATIENT
  Age: 10 Year
  Sex: Female

DRUGS (1)
  1. OMNITROPE [Suspect]
     Active Substance: SOMATROPIN
     Indication: Growth hormone deficiency
     Dosage: 0.7 MG/DAY INCREASED TO 0.8 MG/DAY [DUE TO NORMAL GROWTH]
     Route: 058
     Dates: start: 20220126

REACTIONS (5)
  - Underdose [Not Recovered/Not Resolved]
  - Multiple use of single-use product [Not Recovered/Not Resolved]
  - Product preparation error [Not Recovered/Not Resolved]
  - Drug ineffective [Not Recovered/Not Resolved]
  - Needle issue [Unknown]

NARRATIVE: CASE EVENT DATE: 20220126
